FAERS Safety Report 12652686 (Version 1)
Quarter: 2016Q3

REPORT INFORMATION
  Report Type: Spontaneous
  Country: US (occurrence: US)
  Receive Date: 20160815
  Receipt Date: 20160815
  Transmission Date: 20161109
  Serious: Yes (Other)
  Sender: FDA-Public Use
  Company Number: US-PFIZER INC-2016384888

PATIENT
  Age: 62 Year
  Sex: Female

DRUGS (1)
  1. EFFEXOR XR [Suspect]
     Active Substance: VENLAFAXINE HYDROCHLORIDE
     Dosage: 37.5 MG, UNK

REACTIONS (6)
  - Headache [Unknown]
  - Hyperhidrosis [Unknown]
  - Arrhythmia [Unknown]
  - Insomnia [Unknown]
  - Tachycardia [Unknown]
  - Abdominal discomfort [Unknown]
